FAERS Safety Report 10165277 (Version 1)
Quarter: 2014Q2

REPORT INFORMATION
  Report Type: Spontaneous
  Country: US (occurrence: US)
  Receive Date: 20140510
  Receipt Date: 20140510
  Transmission Date: 20141212
  Serious: No
  Sender: FDA-Public Use
  Company Number: US-BRISTOL-MYERS SQUIBB COMPANY-20371589

PATIENT
  Age: 58 Year
  Sex: Female

DRUGS (1)
  1. BYDUREON [Suspect]
     Indication: TYPE 2 DIABETES MELLITUS
     Dosage: 5TH DOSE ON 28FEB14

REACTIONS (4)
  - Nausea [Unknown]
  - Fatigue [Unknown]
  - Injection site reaction [Unknown]
  - Constipation [Not Recovered/Not Resolved]
